FAERS Safety Report 24270950 (Version 1)
Quarter: 2024Q3

REPORT INFORMATION
  Report Type: Spontaneous
  Country: US (occurrence: US)
  Receive Date: 20240831
  Receipt Date: 20240831
  Transmission Date: 20241017
  Serious: No
  Sender: ABBVIE
  Company Number: US-ABBVIE-5893154

PATIENT

DRUGS (1)
  1. RISANKIZUMAB [Suspect]
     Active Substance: RISANKIZUMAB
     Indication: Crohn^s disease
     Route: 058

REACTIONS (5)
  - Fatigue [Unknown]
  - Urticaria [Unknown]
  - Sensation of foreign body [Unknown]
  - Nausea [Unknown]
  - Lacrimation increased [Unknown]
